FAERS Safety Report 7903506-3 (Version None)
Quarter: 2011Q4

REPORT INFORMATION
  Report Type: 
  Country: None (occurrence: None)
  Receive Date: 20111109
  Receipt Date: 20111101
  Transmission Date: 20120403
  Serious: Yes (Life-Threatening)
  Sender: FDA-Public Use
  Company Number: LB-SANOFI-AVENTIS-2011SA071908

PATIENT
  Age: 66 Year
  Sex: Male
  Weight: 89 kg

DRUGS (8)
  1. LANTUS [Suspect]
     Dates: start: 20110610
  2. SOLOSTAR [Suspect]
  3. ASPIRIN [Concomitant]
  4. APIDRA SOLOSTAR [Suspect]
     Dates: start: 20110906
  5. SOLOSTAR [Suspect]
  6. LOSARTAN POTASSIUM [Concomitant]
  7. ROSUVASTATIN [Concomitant]
  8. METFORMIN HCL [Suspect]

REACTIONS (3)
  - OVERDOSE [None]
  - HYPOGLYCAEMIA [None]
  - WRONG DRUG ADMINISTERED [None]
